FAERS Safety Report 9355367 (Version 1)
Quarter: 2013Q2

REPORT INFORMATION
  Report Type: Report from Study
  Country: CA (occurrence: CA)
  Receive Date: 20130619
  Receipt Date: 20130619
  Transmission Date: 20140414
  Serious: Yes (Hospitalization)
  Sender: FDA-Public Use
  Company Number: CA-JNJFOC-20130607077

PATIENT
  Sex: Male
  Weight: 95.26 kg

DRUGS (2)
  1. REMICADE [Suspect]
     Indication: COLITIS ULCERATIVE
     Route: 042
     Dates: start: 2013
  2. REMICADE [Suspect]
     Indication: COLITIS ULCERATIVE
     Route: 042
     Dates: start: 20130410

REACTIONS (5)
  - Pneumonia [Recovering/Resolving]
  - Viral infection [Recovering/Resolving]
  - Thrombosis [Recovering/Resolving]
  - Immune system disorder [Unknown]
  - Pleural effusion [Recovering/Resolving]
